FAERS Safety Report 6969950-6 (Version None)
Quarter: 2010Q3

REPORT INFORMATION
  Report Type: 
  Country: None (occurrence: None)
  Receive Date: 20100908
  Receipt Date: 20100830
  Transmission Date: 20110219
  Serious: Yes (Death, Hospitalization)
  Sender: FDA-Public Use
  Company Number: FR-ASTRAZENECA-2010SE41178

PATIENT
  Age: 31317 Day
  Sex: Male

DRUGS (9)
  1. ATACAND [Interacting]
     Route: 048
     Dates: end: 20091109
  2. BISOPROLOL FUMARATE [Interacting]
     Route: 048
     Dates: end: 20091109
  3. TAHOR [Interacting]
     Route: 048
     Dates: end: 20091109
  4. EXELON [Interacting]
     Route: 048
     Dates: end: 20091109
  5. MEMANTINE HCL [Suspect]
     Indication: DEMENTIA ALZHEIMER'S TYPE
     Route: 048
     Dates: start: 20091101, end: 20091115
  6. MEMANTINE HCL [Suspect]
     Route: 048
     Dates: start: 20091115, end: 20091126
  7. IMOVANE [Concomitant]
     Route: 048
  8. LASIX [Concomitant]
     Route: 048
     Dates: end: 20091109
  9. SERESTA [Concomitant]
     Route: 048
     Dates: end: 20091109

REACTIONS (3)
  - BLOOD CREATINE PHOSPHOKINASE INCREASED [None]
  - DRUG INTERACTION [None]
  - MYALGIA [None]
